FAERS Safety Report 10529758 (Version 2)
Quarter: 2015Q1

REPORT INFORMATION
  Report Type: Spontaneous
  Country: US (occurrence: None)
  Receive Date: 20141017
  Receipt Date: 20150120
  Transmission Date: 20150720
  Serious: Yes (Hospitalization, Other)
  Sender: FDA-Public Use
  Company Number: AEGR000798

PATIENT
  Age: 58 Year
  Sex: Female
  Weight: 103.4 kg

DRUGS (13)
  1. PROZAC [Concomitant]
     Active Substance: FLUOXETINE HYDROCHLORIDE
  2. VITAMIN D (ERGOCALCIFEROL) [Concomitant]
     Active Substance: ERGOCALCIFEROL
  3. VITAMIN E [Concomitant]
     Active Substance: .ALPHA.-TOCOPHEROL
  4. ASPIRIN(ACETYLSALICYLIC ACID) [Concomitant]
     Active Substance: ASPIRIN
  5. LISINOPRIL. [Concomitant]
     Active Substance: LISINOPRIL
  6. POTASSIUM [Concomitant]
     Active Substance: POTASSIUM
  7. ATENOLOL (ATENOLOL) [Concomitant]
     Active Substance: ATENOLOL
  8. DOCUSATE (DOCUSATE) [Concomitant]
     Active Substance: DOCUSATE
  9. FUROSEMIDE. [Concomitant]
     Active Substance: FUROSEMIDE
  10. ZETIA [Concomitant]
     Active Substance: EZETIMIBE
  11. JUXTAPID [Suspect]
     Active Substance: LOMITAPIDE MESYLATE
     Indication: TYPE IIA HYPERLIPIDAEMIA
     Route: 048
     Dates: start: 201405
  12. FISH OIL (FISH OIL) [Concomitant]
     Active Substance: FISH OIL
  13. PRILOSEC (OMEPRAZOLE) [Concomitant]
     Active Substance: OMEPRAZOLE MAGNESIUM

REACTIONS (1)
  - Coronary artery occlusion [None]
